FAERS Safety Report 5662455-4 (Version None)
Quarter: 2008Q1

REPORT INFORMATION
  Report Type: 
  Country: None (occurrence: None)
  Receive Date: 20080313
  Receipt Date: 20080306
  Transmission Date: 20080703
  Serious: Yes (Other)
  Sender: FDA-Public Use
  Company Number: PHHY2008AU02794

PATIENT
  Sex: Female

DRUGS (1)
  1. ESTALIS SEQUI [Suspect]
     Indication: HORMONE REPLACEMENT THERAPY
     Dosage: 50/250

REACTIONS (7)
  - ANGER [None]
  - HAEMORRHAGE [None]
  - HYPOTENSION [None]
  - MIGRAINE [None]
  - PRURITUS [None]
  - SYNCOPE [None]
  - WEIGHT INCREASED [None]
